FAERS Safety Report 4323487-1 (Version None)
Quarter: 2004Q1

REPORT INFORMATION
  Report Type: 
  Country: None (occurrence: None)
  Receive Date: 20040324
  Receipt Date: 20040324
  Transmission Date: 20041129
  Serious: Yes (Congenital Anomaly)
  Sender: FDA-Public Use
  Company Number: None

PATIENT
  Age: 19 Year
  Sex: Male
  Weight: 63.5036 kg

DRUGS (1)
  1. PAXIL [Suspect]
     Indication: DEPRESSION
     Dosage: 2 TIME

REACTIONS (4)
  - ANGER [None]
  - HYPOAESTHESIA [None]
  - PERSONALITY CHANGE [None]
  - SUICIDAL IDEATION [None]
